FAERS Safety Report 5797459-4 (Version None)
Quarter: 2008Q2

REPORT INFORMATION
  Report Type: 
  Country: None (occurrence: None)
  Receive Date: 20080630
  Receipt Date: 20080619
  Transmission Date: 20081010
  Serious: Yes (Other)
  Sender: FDA-Public Use
  Company Number: 2008050068

PATIENT
  Age: 82 Year
  Sex: Female
  Weight: 52.1637 kg

DRUGS (3)
  1. ASTELIN [Suspect]
     Indication: RHINITIS ALLERGIC
     Dosage: 274 MCG (274 MCG,L IN 1 D), IN
  2. OPCON-A [Suspect]
     Indication: RHINITIS ALLERGIC
     Dosage: OPHTHALMIC
     Route: 047
     Dates: end: 20080519
  3. AZITHROMYCIN [Concomitant]

REACTIONS (7)
  - CARDIAC FIBRILLATION [None]
  - DRUG HYPERSENSITIVITY [None]
  - DYSPNOEA [None]
  - EAR DISCOMFORT [None]
  - INFLUENZA [None]
  - LOSS OF CONSCIOUSNESS [None]
  - OCULAR HYPERAEMIA [None]
